FAERS Safety Report 4666452-7 (Version None)
Quarter: 2005Q2

REPORT INFORMATION
  Report Type: 
  Country: None (occurrence: None)
  Receive Date: 20050518
  Receipt Date: 20050504
  Transmission Date: 20051028
  Serious: No
  Sender: FDA-Public Use
  Company Number: OPD-2005-003

PATIENT
  Age: 19 Month
  Sex: Female
  Weight: 10 kg

DRUGS (3)
  1. ORAPRED [Suspect]
     Indication: BRONCHOSPASM
     Dosage: 2 MG/KG, ONCE, PO
     Route: 048
     Dates: start: 20050424, end: 20050424
  2. MONTELUKAST SODIUM [Concomitant]
  3. ALBUTEROL SULFATE HFA [Concomitant]

REACTIONS (9)
  - AGITATION [None]
  - ATELECTASIS [None]
  - DYSPNOEA EXACERBATED [None]
  - FLUSHING [None]
  - PNEUMONIA [None]
  - PRURITUS [None]
  - RESPIRATORY RATE INCREASED [None]
  - SWELLING FACE [None]
  - URTICARIA [None]
